FAERS Safety Report 5085420-7 (Version None)
Quarter: 2006Q3

REPORT INFORMATION
  Report Type: 
  Country: None (occurrence: None)
  Receive Date: 20060817
  Receipt Date: 20060803
  Transmission Date: 20061208
  Serious: Yes (Other)
  Sender: FDA-Public Use
  Company Number: 2006096449

PATIENT
  Age: 52 Year
  Sex: Male

DRUGS (1)
  1. BEXTRA [Suspect]
     Indication: ARTHRITIS
     Dosage: 10 MG (10 MG, 1 IN 1 D), UNKNOWN
     Dates: end: 20050501

REACTIONS (5)
  - CEREBROVASCULAR ACCIDENT [None]
  - RASH [None]
  - SKIN LESION [None]
  - TRANSIENT ISCHAEMIC ATTACK [None]
  - URTICARIA [None]
